FAERS Safety Report 8544719-X (Version None)
Quarter: 2012Q3

REPORT INFORMATION
  Report Type: 
  Country: None (occurrence: None)
  Receive Date: 20120727
  Receipt Date: 20120716
  Transmission Date: 20120928
  Serious: Yes (Death, Hospitalization)
  Sender: FDA-Public Use
  Company Number: SE-BRISTOL-MYERS SQUIBB COMPANY-14265821

PATIENT
  Age: 61 Year
  Sex: Female

DRUGS (11)
  1. ZOLPIDEM TATRATE [Concomitant]
     Dosage: FILM COATED TABS
  2. PLENDIL [Concomitant]
     Dosage: PROL RELEASE TABS
  3. OMEPRAZOLE [Concomitant]
  4. DIVIGEL [Concomitant]
     Dosage: GEL IN SINGLE DOSE CONTAINER
  5. ORENCIA [Suspect]
     Indication: RHEUMATOID ARTHRITIS
     Route: 042
     Dates: start: 20071101, end: 20080301
  6. METOPROLOL SUCCINATE [Concomitant]
     Dosage: PROLONGED RELEASE TABLET
  7. SALURES [Concomitant]
     Dosage: TABS
  8. PRIMOLUT-NOR [Concomitant]
     Dosage: PROLONGED RELEASE TABS
  9. ASPIRIN [Concomitant]
     Dosage: TABS
  10. ORUDIS [Suspect]
  11. SIMVASTATIN [Concomitant]

REACTIONS (11)
  - OROPHARYNGEAL PAIN [None]
  - RENAL FAILURE [None]
  - BACTERIAL INFECTION [None]
  - CIRCULATORY COLLAPSE [None]
  - FUNGAL INFECTION [None]
  - ORAL MUCOSAL BLISTERING [None]
  - PYREXIA [None]
  - PANCREATITIS [None]
  - ARTHRALGIA [None]
  - RESPIRATORY FAILURE [None]
  - FATIGUE [None]
